FAERS Safety Report 20574494 (Version 1)
Quarter: 2022Q1

REPORT INFORMATION
  Report Type: Other
  Country: US (occurrence: None)
  Receive Date: 20220309
  Receipt Date: 20220309
  Transmission Date: 20220423
  Serious: Yes (Hospitalization, Other)
  Sender: FDA-Public Use
  Company Number: US-ROCHE-3044557

PATIENT
  Sex: Female

DRUGS (20)
  1. RITUXAN [Suspect]
     Active Substance: RITUXIMAB
     Indication: Multiple sclerosis
     Route: 065
  2. ACETAMINOPHEN [Concomitant]
     Active Substance: ACETAMINOPHEN
     Dosage: 1 TABLET PO BID
     Dates: start: 20190809
  3. ARGININE [Concomitant]
     Active Substance: ARGININE
     Route: 048
  4. ASCORBIC ACID [Concomitant]
     Active Substance: ASCORBIC ACID
  5. ATORVASTATIN [Concomitant]
     Active Substance: ATORVASTATIN
     Route: 048
     Dates: start: 20210923
  6. VITAMIN D3 [Concomitant]
     Active Substance: CHOLECALCIFEROL
     Dosage: 125 MCG
  7. CRANBERRY JUICE CONCENTRATE [Concomitant]
     Dates: start: 20210112
  8. CYANOCOBALAMIN [Concomitant]
     Active Substance: CYANOCOBALAMIN
     Dosage: 1000 MCG
     Route: 048
  9. TECFIDERA [Concomitant]
     Active Substance: DIMETHYL FUMARATE
     Route: 048
  10. VUMERITY [Concomitant]
     Active Substance: DIROXIMEL FUMARATE
  11. DOCUSATE [Concomitant]
     Active Substance: DOCUSATE
     Route: 048
  12. FERROUS FUMARATE [Concomitant]
     Active Substance: FERROUS FUMARATE
  13. FERROUS GLUCONATE [Concomitant]
     Active Substance: FERROUS GLUCONATE
  14. FOLIC ACID [Concomitant]
     Active Substance: FOLIC ACID
     Route: 048
  15. FONDAPARINUX [Concomitant]
     Active Substance: FONDAPARINUX
  16. GLATIRAMER [Concomitant]
     Active Substance: GLATIRAMER
  17. LEVOTHYROXINE [Concomitant]
     Active Substance: LEVOTHYROXINE
     Dosage: 137 MCG
     Route: 048
  18. METOPROLOL TARTRATE [Concomitant]
     Active Substance: METOPROLOL TARTRATE
     Route: 048
  19. FISH OIL [Concomitant]
     Active Substance: FISH OIL
     Route: 048
  20. PANTOPRAZOLE [Concomitant]
     Active Substance: PANTOPRAZOLE
     Route: 048

REACTIONS (22)
  - COVID-19 [Unknown]
  - Adrenal disorder [Unknown]
  - Ventricular tachycardia [Unknown]
  - Off label use [Unknown]
  - Urinary tract infection [Unknown]
  - Gastritis erosive [Unknown]
  - Anaemia [Unknown]
  - Dyslipidaemia [Unknown]
  - Hypertension [Unknown]
  - Hypothyroidism [Unknown]
  - Affective disorder [Unknown]
  - JC polyomavirus test positive [Unknown]
  - Lymphopenia [Unknown]
  - Hypercoagulation [Unknown]
  - Hypogammaglobulinaemia [Unknown]
  - Deep vein thrombosis [Unknown]
  - Gastrooesophageal reflux disease [Unknown]
  - Chronic kidney disease [Unknown]
  - Uterine cancer [Unknown]
  - Back pain [Unknown]
  - Type 2 diabetes mellitus [Unknown]
  - Dyspepsia [Unknown]
